FAERS Safety Report 23340086 (Version 1)
Quarter: 2023Q4

REPORT INFORMATION
  Report Type: Spontaneous
  Country: FR (occurrence: FR)
  Receive Date: 20231227
  Receipt Date: 20231227
  Transmission Date: 20240110
  Serious: Yes (Life-Threatening, Hospitalization)
  Sender: FDA-Public Use
  Company Number: None

PATIENT
  Age: 69 Year
  Weight: 88 kg

DRUGS (19)
  1. RAMIPRIL [Concomitant]
     Active Substance: RAMIPRIL
     Route: 065
  2. RILMEDINE [Concomitant]
     Route: 065
  3. EZETIMIBE  ATORVASTATINE [Concomitant]
     Dosage: 10 MG + 40 MG
  4. METFORMIN HYDROCHLORIDE [Concomitant]
     Active Substance: METFORMIN HYDROCHLORIDE
     Route: 065
  5. SITAGLIPTINE METFORMINE [Concomitant]
  6. METFORMIN HYDROCHLORIDE [Suspect]
     Active Substance: METFORMIN HYDROCHLORIDE
     Indication: Type 2 diabetes mellitus
     Dosage: METFORMINE 1G (0-1-0)
     Route: 048
     Dates: end: 20231113
  7. KARDEGIC [Concomitant]
     Active Substance: ASPIRIN DL-LYSINE
     Route: 065
  8. ATENOLOL [Concomitant]
     Active Substance: ATENOLOL
     Route: 065
  9. HYDROCHLOROTHIAZIDE\RAMIPRIL [Concomitant]
     Active Substance: HYDROCHLOROTHIAZIDE\RAMIPRIL
     Dosage: 5 MG/12.5 MG
     Route: 065
  10. INSULIN ASPART [Concomitant]
     Active Substance: INSULIN ASPART
     Dosage: 34 TO 42 IU IN THE EVENING ACCORDING TO DEXTRO
  11. INSULIN ASPART [Concomitant]
     Active Substance: INSULIN ASPART
     Dosage: 34 TO 42 IU IN THE EVENING ACCORDING TO DEXTRO
  12. INSULIN ASPART [Concomitant]
     Active Substance: INSULIN ASPART
     Dosage: 36 IU IN THE MORNING AND 30 IU AT MIDDAY ACCORDING TO DEXTRO (+/- 2 IU IF NECESSARY
  13. SYMBICORT TURBUH [Concomitant]
     Dosage: 200/6 ?G
     Route: 065
  14. BETAHISTINE [Concomitant]
     Active Substance: BETAHISTINE
  15. SERENOA REPENS WHOLE [Concomitant]
     Active Substance: SERENOA REPENS WHOLE
  16. NITRAZEPAM [Concomitant]
     Active Substance: NITRAZEPAM
     Dosage: 1 TSP AT BEDTIME
     Route: 065
  17. ECONAZOLE NITRATE [Concomitant]
     Active Substance: ECONAZOLE NITRATE
     Dosage: 1% POUDRE
     Route: 065
  18. ACETAMINOPHEN [Concomitant]
     Active Substance: ACETAMINOPHEN
     Dosage: TIME INTERVAL: AS NECESSARY
  19. LACTEOL [Concomitant]
     Dosage: 1/JOUR
     Route: 065

REACTIONS (2)
  - Lactic acidosis [Recovered/Resolved]
  - Accidental overdose [Recovered/Resolved]

NARRATIVE: CASE EVENT DATE: 20231113
